FAERS Safety Report 15221062 (Version 1)
Quarter: 2018Q3

REPORT INFORMATION
  Report Type: Spontaneous
  Country: US (occurrence: US)
  Receive Date: 20180731
  Receipt Date: 20180731
  Transmission Date: 20181010
  Serious: Yes (Hospitalization, Other)
  Sender: FDA-Public Use
  Company Number: US-AUROBINDO-AUR-APL-2018-037466

PATIENT
  Age: 48 Year
  Sex: Male

DRUGS (3)
  1. DEXAMFETAMINE+AMFETAMINE [Suspect]
     Active Substance: AMPHETAMINE\DEXTROAMPHETAMINE
     Indication: PRODUCT USED FOR UNKNOWN INDICATION
     Dosage: 60 MILLIGRAM, DAILY IN CYCLICAL FASHION FOR 7 MONTHS EACH YEAR FOR THE LAST 4 YEARS
     Route: 065
  2. TESTOSTERONE. [Interacting]
     Active Substance: TESTOSTERONE
     Indication: PRODUCT USED FOR UNKNOWN INDICATION
     Route: 065
  3. CAFFEINE. [Interacting]
     Active Substance: CAFFEINE
     Indication: PRODUCT USED FOR UNKNOWN INDICATION
     Dosage: 560 MILLIGRAM INSTEAD OF HIS USUAL ONE CUP DAILY
     Route: 065

REACTIONS (9)
  - Loss of personal independence in daily activities [Unknown]
  - Drug level increased [Unknown]
  - Off label use [Unknown]
  - Irritability [Unknown]
  - Psychiatric symptom [Unknown]
  - Intentional product misuse [Unknown]
  - Drug interaction [Unknown]
  - Psychotic disorder [Recovered/Resolved]
  - Delusion [Unknown]
